FAERS Safety Report 11792802 (Version 1)
Quarter: 2015Q4

REPORT INFORMATION
  Report Type: Spontaneous
  Country: IT (occurrence: None)
  Receive Date: 20151130
  Receipt Date: 20151130
  Transmission Date: 20160305
  Serious: Yes (Hospitalization)
  Sender: FDA-Public Use
  Company Number: 2015RR-106407

PATIENT
  Sex: Female

DRUGS (5)
  1. OXALIPLATIN (OXALIPLATIN) UNKNOWN [Suspect]
     Active Substance: OXALIPLATIN
     Indication: COLON CANCER METASTATIC
     Dosage: 130 MG CYCLICAL
  2. AVASTIN [Suspect]
     Active Substance: BEVACIZUMAB
     Indication: COLON CANCER METASTATIC
     Dosage: 260 MG CYCLICAL
     Dates: start: 20150610, end: 20150624
  3. FLUOROURACIL (FLUOROURACIL) [Suspect]
     Active Substance: FLUOROURACIL
     Indication: COLON CANCER METASTATIC
     Dosage: 610 MG CYCLICAL
  4. CALCIUM FOLINATE [Suspect]
     Active Substance: LEUCOVORIN CALCIUM
     Indication: PRODUCT USED FOR UNKNOWN INDICATION
     Dosage: 300 DF CYCLICAL
  5. FOLIC ACID (FOLIC ACID) UNKNOWN [Suspect]
     Active Substance: FOLIC ACID

REACTIONS (2)
  - Diarrhoea [None]
  - Vomiting [None]
